FAERS Safety Report 6140801-5 (Version None)
Quarter: 2009Q2

REPORT INFORMATION
  Report Type: 
  Country: None (occurrence: None)
  Receive Date: 20090401
  Receipt Date: 20090401
  Transmission Date: 20091009
  Serious: No
  Sender: FDA-Public Use
  Company Number: None

PATIENT

DRUGS (1)
  1. METHYLPREDNISOLONE [Suspect]
     Dosage: 4 MG 6 DAYS

REACTIONS (3)
  - DIZZINESS [None]
  - HYPERSENSITIVITY [None]
  - HYPOAESTHESIA [None]
